FAERS Safety Report 9162594 (Version 3)
Quarter: 2013Q2

REPORT INFORMATION
  Report Type: Spontaneous
  Country: US (occurrence: US)
  Receive Date: 20130314
  Receipt Date: 20130426
  Transmission Date: 20140414
  Serious: Yes (Other)
  Sender: FDA-Public Use
  Company Number: US-SANOFI-AVENTIS-2013SA025007

PATIENT
  Age: 55 Year
  Sex: Female
  Weight: 81.64 kg

DRUGS (2)
  1. ALLEGRA [Suspect]
     Indication: NASAL CONGESTION
     Route: 048
     Dates: start: 2011, end: 20130320
  2. ALLEGRA [Suspect]
     Indication: SNEEZING
     Route: 048
     Dates: start: 2011, end: 20130320

REACTIONS (1)
  - Glaucoma [Recovered/Resolved]
